FAERS Safety Report 6783539-3 (Version None)
Quarter: 2010Q2

REPORT INFORMATION
  Report Type: 
  Country: None (occurrence: None)
  Receive Date: 20100622
  Receipt Date: 20100616
  Transmission Date: 20101027
  Serious: Yes (Other)
  Sender: FDA-Public Use
  Company Number: DE-CEPHALON-2010003271

PATIENT
  Sex: Female
  Weight: 80 kg

DRUGS (2)
  1. TRISENOX [Suspect]
     Route: 041
     Dates: start: 20100223, end: 20100423
  2. ALL-TRANS RETINOIC ACID [Suspect]
     Dates: start: 20100219, end: 20100423

REACTIONS (4)
  - ALANINE AMINOTRANSFERASE INCREASED [None]
  - ASPARTATE AMINOTRANSFERASE INCREASED [None]
  - BLOOD ALKALINE PHOSPHATASE INCREASED [None]
  - GAMMA-GLUTAMYLTRANSFERASE INCREASED [None]
